FAERS Safety Report 5038598-5 (Version None)
Quarter: 2006Q2

REPORT INFORMATION
  Report Type: 
  Country: None (occurrence: None)
  Receive Date: 20060629
  Receipt Date: 20060622
  Transmission Date: 20061013
  Serious: Yes (Death, Other)
  Sender: FDA-Public Use
  Company Number: FR-AVENTIS-200612278FR

PATIENT
  Age: 67 Year
  Sex: Female

DRUGS (2)
  1. KETEK [Suspect]
     Indication: BRONCHITIS ACUTE
     Route: 048
     Dates: start: 20060519
  2. IRON NOS [Concomitant]
     Indication: ANAEMIA

REACTIONS (10)
  - CONFUSIONAL STATE [None]
  - DEATH [None]
  - DIARRHOEA HAEMORRHAGIC [None]
  - DIFFICULTY IN WALKING [None]
  - FATIGUE [None]
  - GENERAL PHYSICAL HEALTH DETERIORATION [None]
  - LOSS OF CONSCIOUSNESS [None]
  - NAUSEA [None]
  - SYNCOPE VASOVAGAL [None]
  - VOMITING [None]
